FAERS Safety Report 9528472 (Version 1)
Quarter: 2013Q3

REPORT INFORMATION
  Report Type: Spontaneous
  Country: FR (occurrence: None)
  Receive Date: 20130913
  Receipt Date: 20130913
  Transmission Date: 20140515
  Serious: Yes (Hospitalization)
  Sender: FDA-Public Use
  Company Number: 201357834

PATIENT
  Age: 74 Year
  Sex: Female

DRUGS (6)
  1. FRAGMIN [Suspect]
     Route: 058
     Dates: start: 20130616, end: 20130624
  2. LYRICA [Suspect]
     Route: 048
     Dates: start: 20130618, end: 20130625
  3. SKENAN [Suspect]
     Route: 048
     Dates: start: 20130619, end: 20130625
  4. DOLIPRANE [Suspect]
     Route: 048
     Dates: start: 20130608, end: 20130626
  5. OROCAL [Suspect]
     Dosage: 500 MG, 1X.DAY, ORAL
     Route: 048
     Dates: start: 20130621, end: 20130623
  6. LACTULOSE [Suspect]
     Dosage: 1 DF, 1X/DAY, ORAL
     Route: 048
     Dates: start: 20130620, end: 20130624

REACTIONS (1)
  - Cholestasis [None]
